FAERS Safety Report 26089821 (Version 1)
Quarter: 2025Q4

REPORT INFORMATION
  Report Type: Report from Study
  Country: EU (occurrence: EU)
  Receive Date: 20251125
  Receipt Date: 20251125
  Transmission Date: 20260118
  Serious: Yes (Hospitalization, Other)
  Sender: ABBVIE
  Company Number: EU-ABBVIE-6560847

PATIENT
  Age: 90 Year
  Sex: Female

DRUGS (2)
  1. CARBIDOPA\LEVODOPA [Suspect]
     Active Substance: CARBIDOPA\LEVODOPA
     Indication: Parkinson^s disease
     Dosage: 1.6 TO 1.5 ML/H
     Route: 050
     Dates: start: 20221114
  2. CARBIDOPA\LEVODOPA [Suspect]
     Active Substance: CARBIDOPA\LEVODOPA

REACTIONS (7)
  - Hospitalisation [Recovered/Resolved]
  - Cholangitis [Not Recovered/Not Resolved]
  - Cholecystitis [Unknown]
  - Dyskinesia [Not Recovered/Not Resolved]
  - Cerebrovascular accident [Unknown]
  - Bile duct stone [Not Recovered/Not Resolved]
  - Urinary tract infection [Unknown]

NARRATIVE: CASE EVENT DATE: 20251101
